FAERS Safety Report 9110765 (Version 1)
Quarter: 2013Q1

REPORT INFORMATION
  Report Type: Spontaneous
  Country: US (occurrence: US)
  Receive Date: 20130219
  Receipt Date: 20130219
  Transmission Date: 20140127
  Serious: No
  Sender: FDA-Public Use
  Company Number: US-BRISTOL-MYERS SQUIBB COMPANY-16325151

PATIENT
  Age: 69 Year
  Sex: Female

DRUGS (8)
  1. ORENCIA [Suspect]
     Indication: RHEUMATOID ARTHRITIS
     Dosage: LAST TREATMENT WAS ON 30DEC2011. ?1 DF = 3 VIALS
     Route: 042
     Dates: start: 20110609
  2. CELEBREX [Concomitant]
  3. VITAMIN D [Concomitant]
  4. DIOVAN [Concomitant]
  5. ATIVAN [Concomitant]
  6. CLARITIN [Concomitant]
  7. PEPCID [Concomitant]
  8. FLEXERIL [Concomitant]

REACTIONS (3)
  - Muscle spasms [Not Recovered/Not Resolved]
  - Insomnia [Unknown]
  - Cough [Unknown]
